FAERS Safety Report 8772405 (Version 1)
Quarter: 2012Q4

REPORT INFORMATION
  Report Type: 
  Country: TH (occurrence: TH)
  Receive Date: 20120905
  Receipt Date: 20120905
  Transmission Date: 20130627
  Serious: Yes (Death)
  Sender: FDA-Public Use
  Company Number: PHHY2012TH076419

PATIENT
  Age: 55 Year
  Sex: Female

DRUGS (3)
  1. ZOMETA [Suspect]
     Indication: METASTASES TO BONE
     Dosage: 4 mg, monthly
  2. XELODA [Suspect]
     Indication: CHEMOTHERAPY
     Dosage: UNK UKN, UNK
  3. ZOLADEX [Suspect]
     Dosage: UNK UKN, UNK

REACTIONS (1)
  - Hepatic failure [Fatal]
